FAERS Safety Report 10573844 (Version 1)
Quarter: 2014Q4

REPORT INFORMATION
  Report Type: Spontaneous
  Country: FR (occurrence: FR)
  Receive Date: 20141110
  Receipt Date: 20141110
  Transmission Date: 20150529
  Serious: Yes (Life-Threatening)
  Sender: FDA-Public Use
  Company Number: FR-JNJFOC-20141019346

PATIENT
  Age: 56 Year
  Sex: Male
  Weight: 76 kg

DRUGS (7)
  1. IBRUTINIB [Suspect]
     Active Substance: IBRUTINIB
     Indication: PRODUCT USED FOR UNKNOWN INDICATION
     Route: 048
     Dates: start: 201404, end: 20140915
  2. ZELITREX [Concomitant]
     Active Substance: VALACYCLOVIR HYDROCHLORIDE
     Indication: OPPORTUNISTIC INFECTION
     Dosage: 500 UNITS UNSPECIFIED
     Route: 065
     Dates: start: 1998
  3. BACTRIM [Concomitant]
     Active Substance: SULFAMETHOXAZOLE\TRIMETHOPRIM
     Indication: OPPORTUNISTIC INFECTION
     Route: 065
     Dates: start: 1998
  4. CAELYX [Suspect]
     Active Substance: DOXORUBICIN HYDROCHLORIDE
     Indication: MANTLE CELL LYMPHOMA
     Dosage: 21 DAYS.
     Route: 042
     Dates: start: 201308, end: 201310
  5. SERETIDE [Concomitant]
     Active Substance: FLUTICASONE FUROATE\SALMETEROL XINAFOATE
     Indication: OBSTRUCTIVE AIRWAYS DISORDER
     Route: 055
     Dates: start: 201309
  6. LAROXYL [Concomitant]
     Active Substance: AMITRIPTYLINE
     Indication: ANXIOLYTIC THERAPY
     Dosage: 8 DROPS
     Route: 065
     Dates: start: 201302
  7. BISOCE [Concomitant]
     Active Substance: BISOPROLOL
     Route: 048
     Dates: start: 2010

REACTIONS (2)
  - Cardiac failure [Not Recovered/Not Resolved]
  - Product use issue [Unknown]

NARRATIVE: CASE EVENT DATE: 2013
